FAERS Safety Report 8143156 (Version 4)
Quarter: 2014Q2

REPORT INFORMATION
  Report Type: Spontaneous
  Country: US (occurrence: US)
  Receive Date: 20110920
  Receipt Date: 20140424
  Transmission Date: 20141212
  Serious: Yes (Other)
  Sender: FDA-Public Use
  Company Number: US-BIOGENIDEC-2011BI034971

PATIENT
  Age: 36 Year
  Sex: Male

DRUGS (5)
  1. AVONEX [Suspect]
     Indication: MULTIPLE SCLEROSIS
     Route: 030
     Dates: start: 20001210
  2. GABAPENTIN [Concomitant]
  3. ARMODAFINIL [Concomitant]
  4. FLUTICASONE [Concomitant]
     Route: 045
  5. SIMVASTATIN [Concomitant]
     Route: 048

REACTIONS (4)
  - Skin reaction [Unknown]
  - Blood triglycerides increased [Unknown]
  - Malignant melanoma stage III [Recovered/Resolved]
  - Lymphoma [Unknown]
